FAERS Safety Report 8383772 (Version 2)
Quarter: 2012Q4

REPORT INFORMATION
  Report Type: 
  Country: US (occurrence: US)
  Receive Date: 20120201
  Receipt Date: 20120912
  Transmission Date: 20130627
  Serious: Yes (Death)
  Sender: FDA-Public Use
  Company Number: US-ASTELLAS-2012US001076

PATIENT
  Age: 68 Year
  Sex: Male

DRUGS (2)
  1. TARCEVA [Suspect]
     Indication: MALIGNANT RESPIRATORY TRACT NEOPLASM
     Dosage: UNK
     Route: 048
  2. TARCEVA [Suspect]
     Indication: ADRENAL NEOPLASM

REACTIONS (1)
  - Death [Fatal]
